FAERS Safety Report 15546322 (Version 2)
Quarter: 2018Q4

REPORT INFORMATION
  Report Type: Report from Study
  Country: MX (occurrence: HN)
  Receive Date: 20181024
  Receipt Date: 20181227
  Transmission Date: 20190205
  Serious: Yes (Other)
  Sender: FDA-Public Use
  Company Number: MX-SA-2018SA286225

PATIENT
  Age: 85 Year
  Sex: Male

DRUGS (3)
  1. CARDIOASPIRIN [Concomitant]
     Active Substance: ASPIRIN
     Dosage: 84 MG, QOD
     Route: 048
  2. CLOPIDOGREL BISULFATE. [Suspect]
     Active Substance: CLOPIDOGREL BISULFATE
     Indication: THROMBOSIS PROPHYLAXIS
     Dosage: 1 DF, Q3W
     Route: 048
     Dates: start: 2000
  3. LANTUS [Suspect]
     Active Substance: INSULIN GLARGINE
     Indication: TYPE 2 DIABETES MELLITUS
     Dosage: 18 IU, QD
     Route: 058
     Dates: start: 2007

REACTIONS (7)
  - Off label use [Unknown]
  - Polymyalgia rheumatica [Not Recovered/Not Resolved]
  - Polymyalgia rheumatica [Recovered/Resolved]
  - Stent placement [Unknown]
  - Hyperglycaemia [Not Recovered/Not Resolved]
  - Cataract operation [Unknown]
  - Cataract operation [Unknown]

NARRATIVE: CASE EVENT DATE: 2000
